FAERS Safety Report 7796873-5 (Version None)
Quarter: 2011Q4

REPORT INFORMATION
  Report Type: 
  Country: None (occurrence: None)
  Receive Date: 20111005
  Receipt Date: 20110930
  Transmission Date: 20120403
  Serious: Yes (Death, Other)
  Sender: FDA-Public Use
  Company Number: SE-NAPPMUNDI-GBR-2011-0008868

PATIENT
  Age: 22 Year
  Sex: Female

DRUGS (2)
  1. BUPRENORPHINE [Suspect]
     Indication: PRODUCT USED FOR UNKNOWN INDICATION
     Dosage: UNK
     Route: 065
  2. BENZODIAZEPINE DERIVATIVES [Interacting]
     Indication: PRODUCT USED FOR UNKNOWN INDICATION
     Route: 065

REACTIONS (2)
  - RESPIRATORY ARREST [None]
  - DRUG INTERACTION [None]
